FAERS Safety Report 8740987 (Version 3)
Quarter: 2016Q1

REPORT INFORMATION
  Report Type: Spontaneous
  Country: US (occurrence: US)
  Receive Date: 20120824
  Receipt Date: 20160212
  Transmission Date: 20160526
  Serious: Yes (Hospitalization, Other)
  Sender: FDA-Public Use
  Company Number: US-ASTRAZENECA-2011SE66931

PATIENT
  Age: 55 Year
  Sex: Female
  Weight: 77.1 kg

DRUGS (37)
  1. VITAMINS NOS [Concomitant]
     Active Substance: VITAMINS
  2. TOPRAMAX [Concomitant]
     Indication: MIGRAINE
     Route: 048
     Dates: start: 200612
  3. ZETIA [Concomitant]
     Active Substance: EZETIMIBE
     Indication: BLOOD CHOLESTEROL
  4. CYCLOBENZAPRINE [Concomitant]
     Active Substance: CYCLOBENZAPRINE
     Indication: MYALGIA
     Route: 048
     Dates: start: 201010
  5. IMITREX [Concomitant]
     Active Substance: SUMATRIPTAN SUCCINATE
     Indication: MIGRAINE
     Dosage: AS REQUIRED
     Route: 048
     Dates: start: 2007
  6. TOPRAMAX [Concomitant]
     Indication: MIGRAINE
     Route: 048
     Dates: start: 200612
  7. PREDNISONE. [Concomitant]
     Active Substance: PREDNISONE
     Indication: HYPERSENSITIVITY
  8. OMEPRAZOLE. [Concomitant]
     Active Substance: OMEPRAZOLE
     Indication: GASTROOESOPHAGEAL REFLUX DISEASE
  9. DIPHENHYDRAMINE. [Concomitant]
     Active Substance: DIPHENHYDRAMINE
     Indication: DIARRHOEA
  10. TRICOR [Concomitant]
     Active Substance: FENOFIBRATE
     Indication: BLOOD CHOLESTEROL INCREASED
     Route: 048
     Dates: start: 201307
  11. LINZESS [Concomitant]
     Active Substance: LINACLOTIDE
     Indication: FIBROMYALGIA
     Route: 048
     Dates: start: 20151006
  12. TOPRAMAX [Concomitant]
     Indication: MOOD SWINGS
     Route: 048
     Dates: start: 200612
  13. PLAVIX [Concomitant]
     Active Substance: CLOPIDOGREL BISULFATE
     Indication: ATRIOVENTRICULAR BLOCK
     Route: 048
     Dates: start: 201108
  14. CYMBALTA [Concomitant]
     Active Substance: DULOXETINE HYDROCHLORIDE
     Indication: NEUROPATHY PERIPHERAL
     Route: 048
     Dates: start: 2007
  15. TRAMADOL. [Concomitant]
     Active Substance: TRAMADOL
     Indication: BACK PAIN
     Route: 048
     Dates: start: 2006
  16. ISOSORBIDE MONONITRATE. [Concomitant]
     Active Substance: ISOSORBIDE MONONITRATE
     Indication: DYSPHAGIA
     Route: 048
     Dates: start: 2015
  17. HYDROCORTISONE. [Concomitant]
     Active Substance: HYDROCORTISONE
     Indication: ADRENAL INSUFFICIENCY
     Route: 048
     Dates: start: 201404
  18. VENTOLIN [Concomitant]
     Active Substance: ALBUTEROL SULFATE
     Indication: ASTHMA
     Route: 055
  19. DITROPAN [Concomitant]
     Active Substance: OXYBUTYNIN CHLORIDE
  20. COREG [Concomitant]
     Active Substance: CARVEDILOL
     Indication: ANEURYSM
     Dates: start: 201507
  21. OXYBUTYNIN [Concomitant]
     Active Substance: OXYBUTYNIN
     Route: 048
     Dates: start: 2006
  22. CETAPHIL [Concomitant]
     Active Substance: AVOBENZONE\OCTOCRYLENE\TRICLOSAN
     Indication: DRY SKIN
     Dosage: DAILY MOISTURIZER
     Route: 061
  23. SYMBICORT [Suspect]
     Active Substance: BUDESONIDE\FORMOTEROL FUMARATE DIHYDRATE
     Indication: ASTHMA
     Dosage: 160/4.5 2 PUFFS BID
     Route: 055
     Dates: start: 20110921
  24. TOPRAMAX [Concomitant]
     Indication: MOOD SWINGS
     Route: 048
     Dates: start: 200612
  25. CYMBALTA [Concomitant]
     Active Substance: DULOXETINE HYDROCHLORIDE
     Indication: DEPRESSION
     Route: 048
     Dates: start: 2007
  26. NITROSTAT [Concomitant]
     Active Substance: NITROGLYCERIN
     Indication: CARDIAC DISORDER
     Route: 048
     Dates: start: 2005
  27. VITAMINS NOS [Concomitant]
     Active Substance: VITAMINS
     Indication: VITAMIN SUPPLEMENTATION
     Dosage: DAILY
     Route: 048
     Dates: start: 20160201
  28. CYMBALTA [Concomitant]
     Active Substance: DULOXETINE HYDROCHLORIDE
     Indication: AFFECTIVE DISORDER
     Route: 048
     Dates: start: 2007
  29. RANEXA [Concomitant]
     Active Substance: RANOLAZINE
     Indication: ANGIOPATHY
  30. MINERALS NOS [Concomitant]
     Active Substance: MINERALS
  31. WALGREENS [Concomitant]
     Active Substance: ZINC GLUCONATE
     Indication: PAIN
  32. ZOLMITRIPTAN. [Concomitant]
     Active Substance: ZOLMITRIPTAN
     Indication: HEADACHE
  33. FUROSEMIDE. [Concomitant]
     Active Substance: FUROSEMIDE
  34. LEVOTHYROXINE. [Concomitant]
     Active Substance: LEVOTHYROXINE
     Indication: THYROID DISORDER
  35. PREVACID [Concomitant]
     Active Substance: LANSOPRAZOLE
     Indication: BARRETT^S OESOPHAGUS
     Route: 048
     Dates: start: 201511
  36. ATROVENT [Concomitant]
     Active Substance: IPRATROPIUM BROMIDE
     Indication: ASTHMA
     Route: 055
  37. BIOTIN [Concomitant]
     Active Substance: BIOTIN
     Route: 048
     Dates: start: 201510

REACTIONS (18)
  - Blood cholesterol increased [Not Recovered/Not Resolved]
  - Dry mouth [Unknown]
  - Weight fluctuation [Unknown]
  - Barrett^s oesophagus [Unknown]
  - Sinus disorder [Unknown]
  - Hypopnoea [Unknown]
  - Dry skin [Not Recovered/Not Resolved]
  - Aneurysm [Unknown]
  - Polydipsia [Unknown]
  - Nasal dryness [Unknown]
  - Skin exfoliation [Not Recovered/Not Resolved]
  - Blood cholesterol decreased [Unknown]
  - Oropharyngeal pain [Unknown]
  - Secondary adrenocortical insufficiency [Unknown]
  - Dry eye [Unknown]
  - Dysphagia [Unknown]
  - Weight increased [Not Recovered/Not Resolved]
  - Weight decreased [Unknown]

NARRATIVE: CASE EVENT DATE: 2013
